FAERS Safety Report 5541930-7 (Version None)
Quarter: 2007Q4

REPORT INFORMATION
  Report Type: 
  Country: None (occurrence: None)
  Receive Date: 20071210
  Receipt Date: 20071204
  Transmission Date: 20080405
  Serious: Yes (Disabling, Other)
  Sender: FDA-Public Use
  Company Number: US-SANOFI-SYNTHELABO-A03200706085

PATIENT
  Age: 88 Year
  Sex: Male

DRUGS (1)
  1. PLAVIX [Suspect]
     Indication: DRUG USE FOR UNKNOWN INDICATION
     Dosage: 8 TABLETS OF 75MG IN 8 HOURS
     Route: 048
     Dates: start: 20070501, end: 20070501

REACTIONS (12)
  - ARTHRALGIA [None]
  - ASTHENIA [None]
  - DIZZINESS [None]
  - FAECES DISCOLOURED [None]
  - FATIGUE [None]
  - GASTRIC HAEMORRHAGE [None]
  - HEADACHE [None]
  - HEMIPLEGIA [None]
  - IMPAIRED WORK ABILITY [None]
  - MUSCULOSKELETAL STIFFNESS [None]
  - OVERDOSE [None]
  - PAIN [None]
